FAERS Safety Report 7032176-4 (Version None)
Quarter: 2010Q4

REPORT INFORMATION
  Report Type: 
  Country: None (occurrence: None)
  Receive Date: 20101007
  Receipt Date: 20100926
  Transmission Date: 20110411
  Serious: Yes (Hospitalization)
  Sender: FDA-Public Use
  Company Number: IL-NOVOPROD-315753

PATIENT
  Age: 2 Year
  Sex: Female
  Weight: 7 kg

DRUGS (1)
  1. NORDITROPIN [Suspect]
     Indication: GROWTH HORMONE DEFICIENCY
     Dosage: 0.2 MG, QD
     Dates: start: 20100921

REACTIONS (2)
  - HYPOGLYCAEMIA [None]
  - NASOPHARYNGITIS [None]
